FAERS Safety Report 12759174 (Version 1)
Quarter: 2016Q3

REPORT INFORMATION
  Report Type: Spontaneous
  Country: IL (occurrence: IL)
  Receive Date: 20160919
  Receipt Date: 20160919
  Transmission Date: 20161109
  Serious: Yes (Death, Other)
  Sender: FDA-Public Use
  Company Number: IL-PFIZER INC-2016419587

PATIENT
  Age: 54 Year
  Sex: Female

DRUGS (3)
  1. TRANEXAMIC ACID. [Concomitant]
     Active Substance: TRANEXAMIC ACID
     Indication: MELAENA
     Dosage: UNK
     Route: 042
  2. DAUNORUBICIN [Suspect]
     Active Substance: DAUNORUBICIN
     Indication: ACUTE MYELOID LEUKAEMIA
     Dosage: 30 MG/M2, UNK
  3. CYTARABINE. [Suspect]
     Active Substance: CYTARABINE
     Indication: ACUTE MYELOID LEUKAEMIA
     Dosage: 100 MG/M2, (FOR SEVEN CONSECUTIVE DAYS)

REACTIONS (2)
  - Intestinal haemorrhage [Fatal]
  - Gastrointestinal inflammation [Fatal]
